FAERS Safety Report 24625792 (Version 1)
Quarter: 2024Q4

REPORT INFORMATION
  Report Type: Spontaneous
  Country: US (occurrence: US)
  Receive Date: 20241115
  Receipt Date: 20241115
  Transmission Date: 20250115
  Serious: No
  Sender: ANI
  Company Number: US-ANIPHARMA-2024-US-046678

PATIENT
  Age: 63 Year
  Sex: Female

DRUGS (1)
  1. CORTICOTROPIN [Suspect]
     Active Substance: CORTICOTROPIN
     Indication: Sarcoidosis
     Dosage: INJECT 40 UNITS (0.5ML) SUBCUTANEOUSLY TWO TIMES A WEEK AS DIRECTED. *DISCARD 28 DAYS AFTER FIRST IN
     Route: 058
     Dates: start: 202406

REACTIONS (3)
  - Insomnia [Not Recovered/Not Resolved]
  - Weight increased [Not Recovered/Not Resolved]
  - Product dose omission issue [Recovered/Resolved]

NARRATIVE: CASE EVENT DATE: 20240601
